FAERS Safety Report 9788714 (Version 2)
Quarter: 2014Q1

REPORT INFORMATION
  Report Type: Spontaneous
  Country: US (occurrence: US)
  Receive Date: 20131230
  Receipt Date: 20140319
  Transmission Date: 20141002
  Serious: No
  Sender: FDA-Public Use
  Company Number: US-009507513-1312USA006987

PATIENT
  Age: 26 Year
  Sex: Female
  Weight: 111.11 kg

DRUGS (1)
  1. NEXPLANON [Suspect]
     Indication: CONTRACEPTION
     Dosage: UNK
     Route: 023
     Dates: start: 20130822

REACTIONS (7)
  - Menstruation irregular [Unknown]
  - Medical device complication [Recovered/Resolved]
  - Medical device complication [Recovered/Resolved]
  - Device difficult to use [Not Recovered/Not Resolved]
  - Complication of device removal [Unknown]
  - Incorrect route of drug administration [Unknown]
  - Complication of device removal [Unknown]
